FAERS Safety Report 21458680 (Version 1)
Quarter: 2022Q4

REPORT INFORMATION
  Report Type: Spontaneous
  Country: US (occurrence: US)
  Receive Date: 20221014
  Receipt Date: 20221014
  Transmission Date: 20230112
  Serious: Yes (Death, Other)
  Sender: FDA-Public Use
  Company Number: US-AMGEN-USASP2022173248

PATIENT
  Age: 59 Year
  Sex: Male

DRUGS (2)
  1. RITUXIMAB [Suspect]
     Active Substance: RITUXIMAB
     Indication: Vasculitis
     Dosage: 1 GRAM, Q2WK
     Route: 040
  2. METHYLPREDNISOLONE [Concomitant]
     Active Substance: METHYLPREDNISOLONE
     Dosage: 1 GRAM (FOR 5 DAYS)
     Route: 040

REACTIONS (4)
  - Death [Fatal]
  - Diffuse large B-cell lymphoma [Unknown]
  - Off label use [Unknown]
  - General physical health deterioration [Unknown]
